FAERS Safety Report 6786677-4 (Version None)
Quarter: 2010Q2

REPORT INFORMATION
  Report Type: 
  Country: None (occurrence: None)
  Receive Date: 20100623
  Receipt Date: 20100614
  Transmission Date: 20101027
  Serious: Yes (Hospitalization)
  Sender: FDA-Public Use
  Company Number: IL-PFIZER INC-2010074487

PATIENT
  Age: 76 Year
  Sex: Female

DRUGS (8)
  1. LIPITOR [Suspect]
     Dosage: 20 MG, 1X/DAY
  2. DOXAZOSIN MESILATE [Concomitant]
     Indication: HYPERTENSION
  3. EVISTA [Concomitant]
     Dosage: 60 MG, 1X/DAY
  4. NORVASC [Concomitant]
     Dosage: 5 MG, 1X/DAY
  5. DISOTHIAZIDE [Concomitant]
     Dosage: 25 MG, 1X/DAY
  6. SLOW-K [Concomitant]
     Dosage: 600 MG, 1X/DAY
  7. VITAMIN D [Concomitant]
  8. CALCIUM WITH VITAMIN D [Concomitant]
     Dosage: 600 MG, 1X/DAY

REACTIONS (1)
  - ACNE [None]
